FAERS Safety Report 8588764 (Version 9)
Quarter: 2014Q2

REPORT INFORMATION
  Report Type: Spontaneous
  Country: US (occurrence: US)
  Receive Date: 20120531
  Receipt Date: 20140409
  Transmission Date: 20141212
  Serious: Yes (Hospitalization, Disabling, Other)
  Sender: FDA-Public Use
  Company Number: US-009507513-1205USA04498

PATIENT
  Sex: Female
  Weight: 58.5 kg

DRUGS (1)
  1. FOSAMAX [Suspect]
     Dosage: 70 MG, QW
     Route: 048
     Dates: start: 200005, end: 2009

REACTIONS (28)
  - Femur fracture [Unknown]
  - Intramedullary rod insertion [Unknown]
  - Femur fracture [Unknown]
  - Femur fracture [Unknown]
  - Stress fracture [Unknown]
  - Low turnover osteopathy [Unknown]
  - Osteoporosis [Unknown]
  - Malignant melanoma [Unknown]
  - Foot fracture [Unknown]
  - Hypoaesthesia [Unknown]
  - Osteoarthritis [Unknown]
  - Upper-airway cough syndrome [Unknown]
  - Breast mass [Unknown]
  - Essential hypertension [Unknown]
  - Migraine [Unknown]
  - Cough [Unknown]
  - Upper respiratory tract infection [Unknown]
  - Fall [Unknown]
  - Bronchitis [Unknown]
  - Motion sickness [Unknown]
  - Osteoarthritis [Unknown]
  - Foot fracture [Recovering/Resolving]
  - Ligament sprain [Unknown]
  - Contusion [Unknown]
  - Periarthritis [Unknown]
  - Rib fracture [Recovering/Resolving]
  - Breast cyst [Unknown]
  - Osteoporosis [Unknown]
